FAERS Safety Report 21944433 (Version 1)
Quarter: 2023Q1

REPORT INFORMATION
  Report Type: Spontaneous
  Country: US (occurrence: US)
  Receive Date: 20230202
  Receipt Date: 20230202
  Transmission Date: 20230418
  Serious: Yes (Hospitalization, Other)
  Sender: FDA-Public Use
  Company Number: US-JNJFOC-20230153582

PATIENT
  Sex: Female

DRUGS (2)
  1. RISPERDAL [Suspect]
     Active Substance: RISPERIDONE
     Indication: Product used for unknown indication
     Route: 065
  2. ATIVAN [Suspect]
     Active Substance: LORAZEPAM
     Indication: Product used for unknown indication
     Route: 042

REACTIONS (9)
  - Hospitalisation [Unknown]
  - Seizure [Unknown]
  - Hallucination, auditory [Unknown]
  - Dystonia [Unknown]
  - Tongue paralysis [Unknown]
  - Joint lock [Unknown]
  - Screaming [Unknown]
  - Disturbance in social behaviour [Unknown]
  - Muscle spasms [Unknown]
